FAERS Safety Report 7275393-0 (Version None)
Quarter: 2011Q1

REPORT INFORMATION
  Report Type: 
  Country: None (occurrence: None)
  Receive Date: 20110131
  Receipt Date: 20110117
  Transmission Date: 20110831
  Serious: Yes (Hospitalization)
  Sender: FDA-Public Use
  Company Number: 2011-0249

PATIENT
  Age: 56 Year
  Sex: Female

DRUGS (7)
  1. LOXONIN (LOXOPROFEN SODIUM) [Concomitant]
  2. LANREOTIDE PAMOATE (LANREOTIDE) (LANREOTIDE PAMOATE) [Suspect]
     Indication: ACROMEGALY
     Dosage: SEE IMAGE
     Route: 058
     Dates: start: 20100201
  3. MUCOSTA (REBAMIPIDE) [Concomitant]
  4. BLOPRESS (CANDESARTAN CILEXETIL) [Suspect]
     Indication: HYPERTENSION
     Dosage: 4 MG ORAL
     Route: 048
     Dates: start: 20021210
  5. MAGLAX (MAGNESIUM OXIDE) [Suspect]
     Indication: ABDOMINAL DISTENSION
     Dosage: 660 MG ORAL
     Route: 048
     Dates: start: 20101008
  6. LOXONIN TAPE (LOXOPROFEN SODIUM) [Concomitant]
  7. GASCON (DIMETICONE) [Suspect]
     Indication: ABDOMINAL DISTENSION
     Dosage: 80 MG ORAL
     Route: 048
     Dates: start: 20101008

REACTIONS (1)
  - ABDOMINAL PAIN UPPER [None]
